FAERS Safety Report 4826272-7 (Version None)
Quarter: 2005Q4

REPORT INFORMATION
  Report Type: 
  Country: None (occurrence: None)
  Receive Date: 20051014
  Receipt Date: 20050725
  Transmission Date: 20060501
  Serious: No
  Sender: FDA-Public Use
  Company Number: 2005SP002059

PATIENT
  Age: 56 Year
  Sex: Female
  Weight: 70.3075 kg

DRUGS (11)
  1. LUNESTA [Suspect]
     Dosage: 2 MG; HS; ORAL
     Route: 048
     Dates: start: 20050101, end: 20050601
  2. SYNTHROID [Concomitant]
  3. FOLIC ACID [Concomitant]
  4. FLEXERIL [Concomitant]
  5. PREDNISONE [Concomitant]
  6. ULTRAM [Concomitant]
  7. AMBIEN [Concomitant]
  8. FOSAMAX [Concomitant]
  9. METHOTREXATE [Concomitant]
  10. EAR OINTMENT [Concomitant]
  11. UNSPECIFIED TOPICAL STEROID [Concomitant]

REACTIONS (5)
  - DRUG INEFFECTIVE [None]
  - DRY MOUTH [None]
  - DYSGEUSIA [None]
  - HEADACHE [None]
  - INSOMNIA [None]
